FAERS Safety Report 5187671-X (Version None)
Quarter: 2007Q1

REPORT INFORMATION
  Report Type: 
  Country: None (occurrence: None)
  Receive Date: 20061214
  Receipt Date: 20061130
  Transmission Date: 20070707
  Serious: Yes (Hospitalization, Disabling, Other)
  Sender: FDA-Public Use
  Company Number: 230455K06CAN

PATIENT
  Sex: Female

DRUGS (14)
  1. REBIF [Suspect]
     Indication: MULTIPLE SCLEROSIS
     Dates: start: 19980101
  2. CANNABIS SATIVA [Concomitant]
  3. ESTROGEN NOS [Concomitant]
  4. BISOPROLOL FUMARATE [Concomitant]
  5. ISOSORBIDE MONONITRATE [Concomitant]
  6. OMEPRAZOLE [Concomitant]
  7. ATORVASTATIN CALCIUM [Concomitant]
  8. DIAZEPAM [Concomitant]
  9. AMANTADINE HCL [Concomitant]
  10. FLUTICASONE PROPIONATE [Concomitant]
  11. BREVA [Concomitant]
  12. BACTRIM [Concomitant]
  13. FLUDARABINE [Concomitant]
  14. DOMPERIDONE [Concomitant]

REACTIONS (6)
  - CHRONIC LYMPHOCYTIC LEUKAEMIA [None]
  - LYMPHOMA [None]
  - MUSCLE SPASTICITY [None]
  - PNEUMONIA [None]
  - SENSATION OF HEAVINESS [None]
  - TREMOR [None]
